FAERS Safety Report 18759302 (Version 1)
Quarter: 2021Q1

REPORT INFORMATION
  Report Type: Spontaneous
  Country: US (occurrence: US)
  Receive Date: 20210119
  Receipt Date: 20210119
  Transmission Date: 20210419
  Serious: Yes (Hospitalization, Other)
  Sender: FDA-Public Use
  Company Number: US-MALLINCKRODT-T202100064

PATIENT
  Age: 27 Year
  Sex: Male

DRUGS (2)
  1. ACTEMRA [Concomitant]
     Active Substance: TOCILIZUMAB
     Indication: PRODUCT USED FOR UNKNOWN INDICATION
     Dosage: UNK
     Route: 065
  2. H.P. ACTHAR [Suspect]
     Active Substance: CORTICOTROPIN
     Indication: JUVENILE IDIOPATHIC ARTHRITIS
     Dosage: 0.5 MILLILITER (40 UNITS) ONCE WEEKLY
     Route: 058

REACTIONS (3)
  - Knee operation [Unknown]
  - Arthropathy [Unknown]
  - Femur fracture [Unknown]

NARRATIVE: CASE EVENT DATE: 202012
